FAERS Safety Report 9366686 (Version 1)
Quarter: 2013Q2

REPORT INFORMATION
  Report Type: Spontaneous
  Country: NL (occurrence: NL)
  Receive Date: 20130625
  Receipt Date: 20130625
  Transmission Date: 20140414
  Serious: Yes (Death, Hospitalization)
  Sender: FDA-Public Use
  Company Number: NL-TEVA-403124USA

PATIENT
  Age: 82 Year
  Sex: Male
  Weight: 65 kg

DRUGS (9)
  1. BENDAMUSTINE [Suspect]
     Indication: NON-HODGKIN^S LYMPHOMA
     Dosage: 2 TIMES PER MONTH, 160MG PER 21 DAY CYCLE
     Dates: start: 20130321, end: 20130323
  2. RITUXIMAB [Concomitant]
     Route: 042
     Dates: start: 20130322
  3. ALENDRONIC ACID [Concomitant]
     Dosage: 10 MILLIGRAM DAILY;
     Dates: start: 20121102
  4. BISOPROLOL [Concomitant]
     Dosage: 2.5 MILLIGRAM DAILY;
     Dates: start: 20121008
  5. BUMETANIDE [Concomitant]
     Dosage: 1 MILLIGRAM DAILY;
     Dates: start: 20121024
  6. FRAGMIN [Concomitant]
     Dosage: .5 MILLIGRAM DAILY; 125,000 INJECTION FLUID 25.000IE/ML WWWSP 0.5ML
     Dates: start: 20121211
  7. LACTULOSE [Concomitant]
     Dosage: 670 MG/ML DAILY; (500 MG/G) AT 15 ML ONCE DAILY
     Dates: start: 20121119
  8. PERINDOPRIL [Concomitant]
     Dosage: 2 MILLIGRAM DAILY;
     Dates: start: 20121008
  9. SIMVASTATIN [Concomitant]
     Dosage: 40 MILLIGRAM DAILY;
     Dates: start: 20121008

REACTIONS (2)
  - Death [Fatal]
  - Renal failure acute [Recovering/Resolving]
